FAERS Safety Report 6560851-4 (Version None)
Quarter: 2010Q1

REPORT INFORMATION
  Report Type: 
  Country: None (occurrence: None)
  Receive Date: 20100129
  Receipt Date: 20090924
  Transmission Date: 20100710
  Serious: No
  Sender: FDA-Public Use
  Company Number: US-ABBOTT-09P-163-0599748-00

PATIENT
  Sex: Female
  Weight: 108.96 kg

DRUGS (5)
  1. HUMIRA [Suspect]
     Indication: RHEUMATOID ARTHRITIS
     Route: 058
     Dates: start: 20081001, end: 20090501
  2. HUMIRA [Suspect]
     Route: 058
     Dates: start: 20090801
  3. METHOTREXATE [Suspect]
     Indication: DRUG USE FOR UNKNOWN INDICATION
     Dates: start: 20060101, end: 20090701
  4. INSULIN 70/30 [Concomitant]
     Indication: DIABETES MELLITUS
     Dosage: 20 UNITS IN THE AM AND 20 UNITS IN THE PM
  5. GLUCOPHAGE [Concomitant]
     Indication: DIABETES MELLITUS

REACTIONS (1)
  - HEPATIC ENZYME INCREASED [None]
